FAERS Safety Report 17326461 (Version 1)
Quarter: 2020Q1

REPORT INFORMATION
  Report Type: Spontaneous
  Country: CN (occurrence: CN)
  Receive Date: 20200127
  Receipt Date: 20200127
  Transmission Date: 20200409
  Serious: Yes (Hospitalization, Other)
  Sender: FDA-Public Use
  Company Number: CN-009507513-2001CHN007294

PATIENT
  Age: 68 Year
  Sex: Male
  Weight: 55 kg

DRUGS (5)
  1. KEYTRUDA [Suspect]
     Active Substance: PEMBROLIZUMAB
     Dosage: 200MG IVGTT
     Route: 041
     Dates: start: 20191127
  2. KEYTRUDA [Suspect]
     Active Substance: PEMBROLIZUMAB
     Indication: LUNG NEOPLASM MALIGNANT
     Dosage: 200 MILLIGRAM
     Route: 041
     Dates: start: 20191016, end: 20191016
  3. KEYTRUDA [Suspect]
     Active Substance: PEMBROLIZUMAB
     Dosage: 200MG IVGTT
     Route: 041
     Dates: start: 20191218
  4. RITUXIMAB. [Suspect]
     Active Substance: RITUXIMAB
     Dosage: 200 MILLIGRAM
     Route: 041
     Dates: start: 20191216
  5. KEYTRUDA [Suspect]
     Active Substance: PEMBROLIZUMAB
     Dosage: 200MG IVGTT
     Route: 041
     Dates: start: 20191106

REACTIONS (5)
  - Diabetes mellitus [Recovered/Resolved with Sequelae]
  - Feeling abnormal [Unknown]
  - Ketoacidosis [Recovered/Resolved with Sequelae]
  - Nausea [Recovered/Resolved with Sequelae]
  - Vomiting [Recovered/Resolved with Sequelae]

NARRATIVE: CASE EVENT DATE: 20191216
